FAERS Safety Report 6807667-9 (Version None)
Quarter: 2010Q2

REPORT INFORMATION
  Report Type: 
  Country: None (occurrence: None)
  Receive Date: 20100629
  Receipt Date: 20081106
  Transmission Date: 20101027
  Serious: No
  Sender: FDA-Public Use
  Company Number: US-PFIZER INC-2008094335

PATIENT
  Sex: Female
  Weight: 66.8 kg

DRUGS (8)
  1. TIKOSYN [Suspect]
     Indication: ATRIAL FIBRILLATION
     Dates: start: 20081101
  2. ATENOLOL [Concomitant]
  3. CYMBALTA [Concomitant]
  4. SYNTHROID [Concomitant]
  5. LIPITOR [Concomitant]
  6. VITAMINS [Concomitant]
  7. CALCIUM CARBONATE [Concomitant]
  8. ACTONEL [Concomitant]

REACTIONS (6)
  - ASTHENIA [None]
  - BLOOD PRESSURE INCREASED [None]
  - FEELING HOT [None]
  - HEART RATE DECREASED [None]
  - MALAISE [None]
  - PYREXIA [None]
